FAERS Safety Report 18707890 (Version 1)
Quarter: 2021Q1

REPORT INFORMATION
  Report Type: Spontaneous
  Country: US (occurrence: US)
  Receive Date: 20210106
  Receipt Date: 20210106
  Transmission Date: 20210419
  Serious: No
  Sender: FDA-Public Use
  Company Number: US-PERRIGO-20US009488

PATIENT
  Age: 67 Year
  Sex: Female
  Weight: 63.49 kg

DRUGS (11)
  1. HYDROCORTISONE. [Suspect]
     Active Substance: HYDROCORTISONE
     Indication: EYELIDS PRURITUS
  2. ALOE VERA [Concomitant]
     Active Substance: ALOE VERA LEAF
     Indication: ERYTHEMA OF EYELID
  3. ALOE VERA [Concomitant]
     Active Substance: ALOE VERA LEAF
     Indication: BLEPHARITIS
  4. HYDROCORTISONE. [Suspect]
     Active Substance: HYDROCORTISONE
     Indication: EYELID OEDEMA
  5. HYDROCORTISONE. [Suspect]
     Active Substance: HYDROCORTISONE
     Indication: CONJUNCTIVITIS
  6. ALOE VERA [Concomitant]
     Active Substance: ALOE VERA LEAF
     Indication: EYELID OEDEMA
     Dosage: UNK
     Route: 065
     Dates: start: 2020
  7. ALOE VERA [Concomitant]
     Active Substance: ALOE VERA LEAF
     Indication: EYELIDS PRURITUS
  8. HYDROCORTISONE. [Suspect]
     Active Substance: HYDROCORTISONE
     Indication: BLEPHARITIS
  9. HYDROCORTISONE. [Suspect]
     Active Substance: HYDROCORTISONE
     Indication: DERMATITIS CONTACT
     Dosage: 1 APPLICATION, BID, PRN
     Route: 061
     Dates: start: 202005
  10. HYDROCORTISONE. [Suspect]
     Active Substance: HYDROCORTISONE
     Indication: ERYTHEMA OF EYELID
  11. XELJANZ XR [Concomitant]
     Active Substance: TOFACITINIB CITRATE
     Indication: PRODUCT USED FOR UNKNOWN INDICATION
     Dosage: UNK
     Route: 065
     Dates: start: 2018

REACTIONS (1)
  - Drug ineffective [Unknown]

NARRATIVE: CASE EVENT DATE: 202005
